FAERS Safety Report 7554630-9 (Version None)
Quarter: 2011Q2

REPORT INFORMATION
  Report Type: 
  Country: None (occurrence: None)
  Receive Date: 20110617
  Receipt Date: 20110602
  Transmission Date: 20111010
  Serious: No
  Sender: FDA-Public Use
  Company Number: US-B.I. PHARMACEUTICALS,INC./RIDGEFIELD-2011-BP-11306BP

PATIENT
  Age: 52 Year
  Sex: Male

DRUGS (6)
  1. VICTOZA [Concomitant]
     Dates: start: 20110415
  2. SPIRIVA [Suspect]
     Indication: CHRONIC OBSTRUCTIVE PULMONARY DISEASE
     Dosage: 18 MCG
     Route: 055
     Dates: start: 20110415, end: 20110419
  3. CRESTOR [Concomitant]
     Dates: start: 20110126
  4. PROVENTIL-HFA [Concomitant]
     Dates: start: 20110126
  5. METFORMIN HCL [Concomitant]
  6. LISINOPRIL AND HYDROCHLOROTHIAZIDE [Concomitant]

REACTIONS (3)
  - FATIGUE [None]
  - NAUSEA [None]
  - MALAISE [None]
